FAERS Safety Report 7733745 (Version 2)
Quarter: 2012Q4

REPORT INFORMATION
  Report Type: 
  Country: US (occurrence: US)
  Receive Date: 20101223
  Receipt Date: 20120912
  Transmission Date: 20130627
  Serious: Yes (Hospitalization, Other)
  Sender: FDA-Public Use
  Company Number: US-ROCHE-727245

PATIENT
  Age: 22 Year
  Sex: Male
  Weight: 77.1 kg

DRUGS (1)
  1. ACCUTANE [Suspect]
     Indication: ACNE
     Route: 065
     Dates: start: 1982, end: 1987

REACTIONS (15)
  - Colitis ulcerative [Unknown]
  - Gastrointestinal injury [Unknown]
  - Inflammatory bowel disease [Unknown]
  - Intestinal haemorrhage [Unknown]
  - Spondylitis [Unknown]
  - Oral herpes [Unknown]
  - Nephrolithiasis [Unknown]
  - Dry eye [Unknown]
  - Nasal dryness [Unknown]
  - Dry mouth [Unknown]
  - Pruritus [Unknown]
  - Burning sensation [Unknown]
  - Dry skin [Unknown]
  - Alopecia [Unknown]
  - Paraesthesia [Unknown]
